FAERS Safety Report 23535420 (Version 1)
Quarter: 2024Q1

REPORT INFORMATION
  Report Type: Report from Study
  Country: MX (occurrence: None)
  Receive Date: 20240218
  Receipt Date: 20240218
  Transmission Date: 20240409
  Serious: Yes (Other)
  Sender: FDA-Public Use
  Company Number: 2023A110550

PATIENT
  Age: 79 Year
  Sex: Female
  Weight: 52 kg

DRUGS (1)
  1. TAGRISSO [Suspect]
     Active Substance: OSIMERTINIB
     Indication: Lung neoplasm malignant
     Route: 048
     Dates: start: 20211101

REACTIONS (8)
  - Endocrine disorder [Unknown]
  - Lymph node haemorrhage [Unknown]
  - Cerebral disorder [Unknown]
  - Encephalomalacia [Unknown]
  - Pulmonary mass [Unknown]
  - Bone density abnormal [Unknown]
  - Degenerative bone disease [Unknown]
  - Lymph node calcification [Unknown]

NARRATIVE: CASE EVENT DATE: 20230510
